FAERS Safety Report 5236407-2 (Version None)
Quarter: 2007Q1

REPORT INFORMATION
  Report Type: 
  Country: None (occurrence: None)
  Receive Date: 20070208
  Receipt Date: 20070206
  Transmission Date: 20070707
  Serious: Yes (Hospitalization)
  Sender: FDA-Public Use
  Company Number: MTF20070001

PATIENT
  Age: 33 Year
  Sex: Female

DRUGS (1)
  1. METFORMIN UNKNOWN UNKNOWN [Suspect]
     Indication: WEIGHT CONTROL
     Dosage: UNK UNK PO
     Route: 048
     Dates: start: 20060101, end: 20060101

REACTIONS (2)
  - LEUKOCYTOCLASTIC VASCULITIS [None]
  - SELF-MEDICATION [None]
